FAERS Safety Report 8475117-5 (Version None)
Quarter: 2012Q2

REPORT INFORMATION
  Report Type: 
  Country: None (occurrence: None)
  Receive Date: 20120628
  Receipt Date: 20120619
  Transmission Date: 20120825
  Serious: Yes (Other)
  Sender: FDA-Public Use
  Company Number: CA-JNJFOC-20120609381

PATIENT
  Sex: Female
  Weight: 81 kg

DRUGS (4)
  1. METHOTREXATE [Concomitant]
     Dosage: 4 PILLS PER WEEK
     Route: 065
  2. REMICADE [Suspect]
     Indication: CROHN'S DISEASE
     Route: 042
     Dates: start: 20090319
  3. CELEXA [Concomitant]
     Route: 065
  4. FOLIC ACID [Concomitant]
     Route: 065

REACTIONS (1)
  - HYPOTHYROIDISM [None]
